FAERS Safety Report 7406267-X (Version None)
Quarter: 2011Q2

REPORT INFORMATION
  Report Type: 
  Country: None (occurrence: None)
  Receive Date: 20110401
  Receipt Date: 20110322
  Transmission Date: 20111010
  Serious: Yes (Other)
  Sender: FDA-Public Use
  Company Number: 2011SP004048

PATIENT
  Age: 29 Year
  Sex: Female
  Weight: 76 kg

DRUGS (1)
  1. IMPLANON [Suspect]
     Indication: CONTRACEPTION
     Dosage: 68 MG;ONCE;SBDE
     Route: 059
     Dates: start: 20100208

REACTIONS (3)
  - PREGNANCY WITH IMPLANT CONTRACEPTIVE [None]
  - AMENORRHOEA [None]
  - ABORTION SPONTANEOUS [None]
